FAERS Safety Report 24145460 (Version 1)
Quarter: 2024Q3

REPORT INFORMATION
  Report Type: Spontaneous
  Country: US (occurrence: US)
  Receive Date: 20240729
  Receipt Date: 20240729
  Transmission Date: 20241016
  Serious: Yes (Hospitalization)
  Sender: NOVITIUM PHARMA
  Company Number: US-NOVITIUMPHARMA-2024USNVP01395

PATIENT
  Age: 30 Year
  Sex: Male

DRUGS (8)
  1. FLUOXETINE [Suspect]
     Active Substance: FLUOXETINE HYDROCHLORIDE
     Indication: Major depression
  2. FLUOXETINE [Suspect]
     Active Substance: FLUOXETINE HYDROCHLORIDE
     Indication: Catatonia
  3. OLANZAPINE [Concomitant]
     Active Substance: OLANZAPINE
     Indication: Major depression
  4. OLANZAPINE [Concomitant]
     Active Substance: OLANZAPINE
     Indication: Catatonia
  5. LORAZEPAM [Concomitant]
     Active Substance: LORAZEPAM
     Indication: Major depression
  6. LORAZEPAM [Concomitant]
     Active Substance: LORAZEPAM
     Indication: Catatonia
  7. CLONAZEPAM [Concomitant]
     Active Substance: CLONAZEPAM
     Indication: Catatonia
  8. CLONAZEPAM [Concomitant]
     Active Substance: CLONAZEPAM
     Indication: Major depression

REACTIONS (1)
  - Drug ineffective [Unknown]
